FAERS Safety Report 5151351-7 (Version None)
Quarter: 2006Q4

REPORT INFORMATION
  Report Type: 
  Country: None (occurrence: None)
  Receive Date: 20061114
  Receipt Date: 20061114
  Transmission Date: 20070319
  Serious: Yes (Other)
  Sender: FDA-Public Use
  Company Number: None

PATIENT
  Age: 50 Year
  Sex: Female
  Weight: 43.0917 kg

DRUGS (12)
  1. ACETAMINOPHEN [Suspect]
     Indication: INTERVERTEBRAL DISC PROTRUSION
     Dosage: 500 MG    4 TIMES  DAY
     Dates: start: 20051101, end: 20060301
  2. ACETAMINOPHEN [Suspect]
     Indication: BACK PAIN
  3. ACETAMINOPHEN [Suspect]
     Indication: PAIN IN EXTREMITY
  4. IBUPROFEN [Concomitant]
  5. HYDROCO WITH TYLENTO [Concomitant]
  6. METHYOPRED [Concomitant]
  7. METHYLPRED [Concomitant]
  8. GABAPENTIN [Concomitant]
  9. NABUMETONE [Concomitant]
  10. PREDNISONE TAB [Concomitant]
  11. B-12 [Concomitant]
  12. D VITAMIN [Concomitant]

REACTIONS (7)
  - GASTRIC DISORDER [None]
  - HYPOAESTHESIA [None]
  - PAIN IN EXTREMITY [None]
  - PHARMACEUTICAL PRODUCT COMPLAINT [None]
  - POOR QUALITY DRUG ADMINISTERED [None]
  - RASH MACULAR [None]
  - VASCULITIS [None]
